FAERS Safety Report 16608791 (Version 1)
Quarter: 2019Q3

REPORT INFORMATION
  Report Type: Spontaneous
  Country: US (occurrence: US)
  Receive Date: 20190721
  Receipt Date: 20190721
  Transmission Date: 20191004
  Serious: Yes (Other)
  Sender: FDA-Public Use
  Company Number: None

PATIENT
  Age: 47 Year
  Sex: Female
  Weight: 63 kg

DRUGS (5)
  1. NYSTATIN. [Concomitant]
     Active Substance: NYSTATIN
  2. GAMUNEX-C [Suspect]
     Active Substance: HUMAN IMMUNOGLOBULIN G
     Indication: POLYNEUROPATHY
     Dosage: 2 100 ML; 3 DAYS A MONTH; INTRAVENOUS?
     Route: 042
     Dates: start: 20190719, end: 20190721
  3. DIFLUCAN [Concomitant]
     Active Substance: FLUCONAZOLE
  4. GAMUNEX-C [Suspect]
     Active Substance: HUMAN IMMUNOGLOBULIN G
     Indication: POLYNEUROPATHY
     Dosage: 2 200ML; 3 DAYS A MONTH; INTRAVENOUS?
     Route: 042
     Dates: start: 20190719, end: 20190721
  5. WOMEN^S ONE A DAY MULTIVITAMIN [Concomitant]

REACTIONS (4)
  - Infusion related reaction [None]
  - Recalled product [None]
  - Urticaria [None]
  - Hypersensitivity [None]

NARRATIVE: CASE EVENT DATE: 20190719
